FAERS Safety Report 25096404 (Version 5)
Quarter: 2025Q4

REPORT INFORMATION
  Report Type: Spontaneous
  Country: US (occurrence: US)
  Receive Date: 20250319
  Receipt Date: 20251106
  Transmission Date: 20260117
  Serious: No
  Sender: PFIZER
  Company Number: US-PFIZER INC-202500058112

PATIENT
  Age: 78 Year
  Sex: Female

DRUGS (2)
  1. IBRANCE [Suspect]
     Active Substance: PALBOCICLIB
     Indication: Breast cancer female
     Dosage: 100 MG, CYCLIC (DAILY, 3 WEEKS ON AND 7 DAYS OFF)
     Route: 048
  2. IBRANCE [Suspect]
     Active Substance: PALBOCICLIB
     Dosage: 100 MG, CYCLIC, TAKE 1 TABLET BY MOUTH DAILY FOR 21 DAYS ON, 7 DAYS OFF.
     Route: 048

REACTIONS (3)
  - Cough [Unknown]
  - Epistaxis [Unknown]
  - Product dose omission in error [Unknown]
